FAERS Safety Report 11784482 (Version 2)
Quarter: 2015Q4

REPORT INFORMATION
  Report Type: Report from Study
  Country: ES (occurrence: ES)
  Receive Date: 20151129
  Receipt Date: 20151203
  Transmission Date: 20160305
  Serious: Yes (Hospitalization)
  Sender: FDA-Public Use
  Company Number: ES-ROCHE-1668979

PATIENT
  Age: 67 Year
  Sex: Male

DRUGS (2)
  1. BEVACIZUMAB [Suspect]
     Active Substance: BEVACIZUMAB
     Indication: NON-SMALL CELL LUNG CANCER
     Dosage: LAST DATE PRIOR TO SAE: 04/NOV/2015
     Route: 042
     Dates: start: 20141014
  2. ERLOTINIB [Suspect]
     Active Substance: ERLOTINIB
     Indication: NON-SMALL CELL LUNG CANCER
     Dosage: LAST DATE PRIOR TO SAE: 22/NOV/2015
     Route: 048
     Dates: start: 20141014

REACTIONS (1)
  - Acute coronary syndrome [Unknown]

NARRATIVE: CASE EVENT DATE: 20151123
